FAERS Safety Report 26209246 (Version 1)
Quarter: 2025Q4

REPORT INFORMATION
  Report Type: Spontaneous
  Country: US (occurrence: None)
  Receive Date: 20251229
  Receipt Date: 20251229
  Transmission Date: 20260117
  Serious: No
  Sender: INCYTE
  Company Number: US-INCYTE CORPORATION-2025IN014293

PATIENT

DRUGS (1)
  1. JAKAFI [Suspect]
     Active Substance: RUXOLITINIB
     Indication: Polycythaemia vera
     Dosage: 10 MILLIGRAM, BID
     Route: 061

REACTIONS (2)
  - Aphthous ulcer [Not Recovered/Not Resolved]
  - Diarrhoea [Recovered/Resolved]
